FAERS Safety Report 10255619 (Version 1)
Quarter: 2014Q2

REPORT INFORMATION
  Report Type: Spontaneous
  Country: DE (occurrence: None)
  Receive Date: 20140620
  Receipt Date: 20140620
  Transmission Date: 20141212
  Serious: Yes (Other)
  Sender: FDA-Public Use
  Company Number: AUR-APL-2014-06495

PATIENT
  Age: 77 Year
  Sex: Male

DRUGS (2)
  1. QUETIAPINE [Suspect]
     Indication: HALLUCINATION
     Route: 048
     Dates: start: 20140303
  2. MADOPAR (BENSERAZIDE HYDROCHLORIDE, LEVODOPA) [Concomitant]

REACTIONS (6)
  - Jaundice [None]
  - Confusional state [None]
  - Aspartate aminotransferase increased [None]
  - Blood alkaline phosphatase increased [None]
  - Blood bilirubin increased [None]
  - Blood glucose decreased [None]
